FAERS Safety Report 6376320-0 (Version None)
Quarter: 2009Q3

REPORT INFORMATION
  Report Type: 
  Country: None (occurrence: None)
  Receive Date: 20090917
  Receipt Date: 20090917
  Transmission Date: 20100115
  Serious: Yes (Other)
  Sender: FDA-Public Use
  Company Number: None

PATIENT
  Age: 47 Year
  Sex: Male
  Weight: 73.0291 kg

DRUGS (1)
  1. LISTERINE [Suspect]

REACTIONS (1)
  - SENSITIVITY OF TEETH [None]
